FAERS Safety Report 16200938 (Version 1)
Quarter: 2019Q2

REPORT INFORMATION
  Report Type: Spontaneous
  Country: US (occurrence: US)
  Receive Date: 20190416
  Receipt Date: 20190416
  Transmission Date: 20190711
  Serious: Yes (Hospitalization)
  Sender: FDA-Public Use
  Company Number: US-ROCHE-2163065

PATIENT
  Age: 16 Year
  Sex: Female

DRUGS (9)
  1. BENADRYL [Concomitant]
     Active Substance: DIPHENHYDRAMINE HYDROCHLORIDE
  2. DELTASONE (PREDNISONE) [Concomitant]
     Indication: IMMUNOSUPPRESSION
     Route: 048
  3. POSACONAZOLE [Concomitant]
     Active Substance: POSACONAZOLE
  4. SULFAMETHOXAZOLE/TRIMETHOPRIM [Concomitant]
     Active Substance: SULFAMETHOXAZOLE\TRIMETHOPRIM
  5. TYLENOL [Concomitant]
     Active Substance: ACETAMINOPHEN
  6. AZITHROMYCIN ANHYDROUS. [Concomitant]
     Active Substance: AZITHROMYCIN ANHYDROUS
  7. RITUXAN [Suspect]
     Active Substance: RITUXIMAB
     Indication: LUNG TRANSPLANT
     Dosage: 2 DOSES: 375 MG/M2 ON DAY 0 (WITHIN 12 HOURS OF RETURN TO ICU FOLLOWING TRANSPLANT) AND DAY 12 (PLUS
     Route: 042
     Dates: start: 20160713
  8. MYCOPHENOLATE [Concomitant]
     Active Substance: MYCOPHENOLIC ACID
     Indication: IMMUNOSUPPRESSION
     Dosage: 3 CAPSULES (750 MG) EVERY MORNING?4 CAPSULES (1000 MG) EVERY NIGHT
     Route: 048
  9. TACROLIMUS. [Concomitant]
     Active Substance: TACROLIMUS
     Indication: IMMUNOSUPPRESSION
     Route: 048

REACTIONS (1)
  - Transplant rejection [Recovered/Resolved]

NARRATIVE: CASE EVENT DATE: 20180724
